FAERS Safety Report 5058507-2 (Version None)
Quarter: 2006Q2

REPORT INFORMATION
  Report Type: 
  Country: None (occurrence: None)
  Receive Date: 20060627
  Receipt Date: 20060527
  Transmission Date: 20061013
  Serious: Yes (Death)
  Sender: FDA-Public Use
  Company Number: 406357

PATIENT
  Age: 58 Year
  Sex: Female
  Weight: 53.1 kg

DRUGS (1)
  1. XELODA [Suspect]
     Indication: NEOPLASM MALIGNANT
     Dosage: 500 MG, 2 PER DAY ORAL
     Route: 048
     Dates: start: 20050223, end: 20050301

REACTIONS (1)
  - DEATH [None]
